FAERS Safety Report 11137831 (Version 1)
Quarter: 2015Q2

REPORT INFORMATION
  Report Type: Spontaneous
  Country: US (occurrence: US)
  Receive Date: 20150526
  Receipt Date: 20150526
  Transmission Date: 20150821
  Serious: No
  Sender: FDA-Public Use
  Company Number: US-MALLINCKRODT-T201501081

PATIENT
  Age: 47 Year
  Sex: Female

DRUGS (1)
  1. H.P. ACTHAR [Suspect]
     Active Substance: CORTICOTROPIN
     Indication: GLOMERULONEPHRITIS MEMBRANOPROLIFERATIVE
     Dosage: 80 UNITS, TWICE WKLY
     Route: 058
     Dates: start: 20150107

REACTIONS (6)
  - Contusion [Unknown]
  - Visual impairment [Unknown]
  - Lethargy [Unknown]
  - Hypersomnia [Unknown]
  - Swelling face [Unknown]
  - Laceration [Unknown]

NARRATIVE: CASE EVENT DATE: 201501
